FAERS Safety Report 17052715 (Version 1)
Quarter: 2019Q4

REPORT INFORMATION
  Report Type: Spontaneous
  Country: US (occurrence: US)
  Receive Date: 20191119
  Receipt Date: 20191119
  Transmission Date: 20200122
  Serious: Yes (Other)
  Sender: FDA-Public Use
  Company Number: None

PATIENT

DRUGS (1)
  1. LUPRON [Suspect]
     Active Substance: LEUPROLIDE ACETATE
     Dosage: ?          OTHER FREQUENCY:EVERY 3 MONTHS;?

REACTIONS (3)
  - Incorrect dose administered [None]
  - Product dispensing error [None]
  - Product storage error [None]

NARRATIVE: CASE EVENT DATE: 20190814
